FAERS Safety Report 8103695-4 (Version None)
Quarter: 2012Q1

REPORT INFORMATION
  Report Type: 
  Country: None (occurrence: None)
  Receive Date: 20120201
  Receipt Date: 20120126
  Transmission Date: 20120608
  Serious: Yes (Hospitalization, Other)
  Sender: FDA-Public Use
  Company Number: FR-PFIZER INC-2011164206

PATIENT
  Age: 53 Year
  Sex: Male

DRUGS (14)
  1. KAYEXALATE [Suspect]
     Indication: PRODUCT USED FOR UNKNOWN INDICATION
     Dosage: UNK
     Route: 048
     Dates: start: 20110603, end: 20110626
  2. PREDNISOLONE [Suspect]
     Dosage: UNK
     Route: 048
     Dates: start: 20110604, end: 20110627
  3. SOLU-MEDROL [Concomitant]
     Dosage: UNK
     Dates: start: 20110601, end: 20110604
  4. PREDNISOLONE [Suspect]
     Dosage: UNK
     Dates: start: 20110630
  5. REPAGLINIDE [Suspect]
     Indication: DIABETES MELLITUS
     Dosage: UNK
     Route: 048
     Dates: start: 20110603, end: 20110626
  6. FUCIDINE CAP [Concomitant]
     Dosage: UNK
     Dates: start: 20110501
  7. ATORVASTATIN [Suspect]
     Indication: PRODUCT USED FOR UNKNOWN INDICATION
     Dosage: 10 MG, DAILY
     Route: 048
     Dates: start: 20110530, end: 20110624
  8. EUPRESSYL [Suspect]
     Indication: PRODUCT USED FOR UNKNOWN INDICATION
     Dosage: UNK
     Route: 048
     Dates: start: 20110529
  9. AMLODIPINE BESYLATE [Suspect]
     Indication: PRODUCT USED FOR UNKNOWN INDICATION
     Dosage: UNK
     Route: 048
  10. METHYLPREDNISOLONE [Concomitant]
     Dosage: UNK
     Dates: start: 20110626, end: 20110629
  11. RAMIPRIL [Suspect]
     Dosage: UNK
     Route: 048
     Dates: start: 20110604, end: 20110614
  12. KEPPRA [Suspect]
     Dosage: UNK
     Route: 048
  13. CITALOPRAM BASE [Suspect]
     Dosage: UNK
     Route: 048
  14. LOCOID [Concomitant]
     Dosage: UNK
     Dates: start: 20110501, end: 20110501

REACTIONS (6)
  - DIZZINESS [None]
  - RENAL IMPAIRMENT [None]
  - NEPHROPATHY [None]
  - HYDROCEPHALUS [None]
  - SEPSIS [None]
  - TUBULOINTERSTITIAL NEPHRITIS [None]
